FAERS Safety Report 7937299-0 (Version None)
Quarter: 2011Q4

REPORT INFORMATION
  Report Type: 
  Country: None (occurrence: None)
  Receive Date: 20111123
  Receipt Date: 20111114
  Transmission Date: 20120403
  Serious: Yes (Death, Hospitalization, Other)
  Sender: FDA-Public Use
  Company Number: GB-ROCHE-GNE322629

PATIENT
  Sex: Female

DRUGS (19)
  1. OMEPRAZOLE [Concomitant]
  2. OXYCONTIN [Concomitant]
  3. LACTULOSE [Concomitant]
  4. CARMELLOSE SODIUM [Concomitant]
  5. CITALOPRAM HYDROBROMIDE [Concomitant]
  6. LEVOTHYROXINE SODIUM [Concomitant]
  7. PIROXICAM [Concomitant]
  8. QUININE SULFATE [Concomitant]
  9. POLYETHYLENE GLYCOL [Concomitant]
  10. LUCENTIS [Suspect]
     Indication: PRODUCT USED FOR UNKNOWN INDICATION
     Route: 050
  11. PREDNISOLONE [Concomitant]
  12. HYPROMELLOSE [Concomitant]
  13. DEXTRAN INJ [Concomitant]
  14. ACETAMINOPHEN [Concomitant]
  15. IBANDRONATE SODIUM [Concomitant]
  16. LIDOCAINE [Concomitant]
  17. IRBESARTAN [Concomitant]
  18. ASPIRIN [Concomitant]
  19. SIMVASTATIN [Concomitant]

REACTIONS (11)
  - DIVERTICULUM [None]
  - RESPIRATORY FAILURE [None]
  - INTERVERTEBRAL DISC DEGENERATION [None]
  - ARTHRITIS [None]
  - DEATH [None]
  - OSTEOPOROSIS [None]
  - ATRIAL FIBRILLATION [None]
  - LUMBAR VERTEBRAL FRACTURE [None]
  - RENAL FAILURE CHRONIC [None]
  - AORTIC VALVE INCOMPETENCE [None]
  - FALL [None]
